FAERS Safety Report 5220557-0 (Version None)
Quarter: 2007Q1

REPORT INFORMATION
  Report Type: 
  Country: None (occurrence: None)
  Receive Date: 20070126
  Receipt Date: 20070117
  Transmission Date: 20070707
  Serious: Yes (Other)
  Sender: FDA-Public Use
  Company Number: IR-JNJFOC-20070105597

PATIENT
  Age: 28 Year
  Sex: Male

DRUGS (3)
  1. REMICADE [Suspect]
     Indication: SERONEGATIVE ARTHRITIS
     Dosage: FIRST INFUSION
     Route: 042
  2. METHOTREXATE [Concomitant]
  3. STEROID [Concomitant]

REACTIONS (1)
  - DEAFNESS NEUROSENSORY [None]
